FAERS Safety Report 9618058 (Version 2)
Quarter: 2013Q4

REPORT INFORMATION
  Report Type: Report from Study
  Country: RU (occurrence: RU)
  Receive Date: 20131012
  Receipt Date: 20131014
  Transmission Date: 20140711
  Serious: Yes (Other)
  Sender: FDA-Public Use
  Company Number: RU-ROCHE-1288275

PATIENT
  Age: 37 Year
  Sex: Female
  Weight: 87 kg

DRUGS (8)
  1. AVASTIN [Suspect]
     Indication: APPENDIX CANCER
     Route: 065
     Dates: start: 20120815
  2. AVASTIN [Suspect]
     Indication: METASTASES TO PELVIS
  3. XELODA [Suspect]
     Indication: APPENDIX CANCER
     Dosage: DAYS 1-14
     Route: 065
     Dates: start: 20120815, end: 20130206
  4. XELODA [Suspect]
     Indication: METASTASES TO PELVIS
  5. OXALIPLATIN [Concomitant]
     Indication: APPENDIX CANCER
     Route: 065
     Dates: start: 20120815, end: 20130206
  6. OXALIPLATIN [Concomitant]
     Indication: METASTASES TO PELVIS
     Route: 065
     Dates: start: 20130819
  7. IRINOTECAN [Concomitant]
     Indication: APPENDIX CANCER
     Route: 065
     Dates: start: 20130819
  8. IRINOTECAN [Concomitant]
     Indication: METASTASES TO PELVIS

REACTIONS (1)
  - Disease progression [Unknown]
